FAERS Safety Report 18325992 (Version 1)
Quarter: 2020Q3

REPORT INFORMATION
  Report Type: Report from Study
  Country: CO (occurrence: CO)
  Receive Date: 20200929
  Receipt Date: 20200929
  Transmission Date: 20201103
  Serious: Yes (Other)
  Sender: FDA-Public Use
  Company Number: PHHY2019CO094192

PATIENT
  Sex: Female
  Weight: 60 kg

DRUGS (2)
  1. KISQALI [Suspect]
     Active Substance: RIBOCICLIB
     Indication: BREAST CANCER METASTATIC
     Dosage: 600 MG, QD
     Route: 048
     Dates: start: 20190225
  2. FEMARA [Suspect]
     Active Substance: LETROZOLE
     Indication: BREAST CANCER
     Dosage: 2.5 MG, QD
     Route: 048
     Dates: start: 20190225

REACTIONS (13)
  - Pigmentation disorder [Unknown]
  - Colon injury [Unknown]
  - Visual impairment [Unknown]
  - Inflammation [Unknown]
  - Abdominal discomfort [Unknown]
  - Eye irritation [Unknown]
  - Eye disorder [Unknown]
  - Lacrimation increased [Unknown]
  - Decreased appetite [Unknown]
  - Abdominal pain [Unknown]
  - Acne [Unknown]
  - Neoplasm malignant [Unknown]
  - Abscess [Unknown]
